FAERS Safety Report 22088993 (Version 1)
Quarter: 2023Q1

REPORT INFORMATION
  Report Type: Spontaneous
  Country: RO (occurrence: RO)
  Receive Date: 20230313
  Receipt Date: 20230313
  Transmission Date: 20230417
  Serious: Yes (Other)
  Sender: FDA-Public Use
  Company Number: RO-AMGEN-ROUSP2023027220

PATIENT
  Age: 74 Year
  Sex: Male

DRUGS (4)
  1. OXALIPLATIN [Suspect]
     Active Substance: OXALIPLATIN
     Indication: Colorectal cancer metastatic
     Dosage: UNK, Q2W,(EVERY 2 WEEKS)
     Route: 042
  2. LEUCOVORIN [Suspect]
     Active Substance: LEUCOVORIN
     Indication: Colorectal cancer metastatic
     Dosage: UNK, Q2W,(EVERY 2 WEEKS)
     Route: 042
  3. FLUOROURACIL [Suspect]
     Active Substance: FLUOROURACIL
     Indication: Colorectal cancer metastatic
     Dosage: UNK, Q2W,(EVERY 2 WEEKS)
     Route: 042
  4. VECTIBIX [Suspect]
     Active Substance: PANITUMUMAB
     Indication: Colorectal cancer metastatic
     Dosage: UNK,DOSAGE1,Q2W(EVERY 2 WEEKS)
     Route: 042

REACTIONS (2)
  - Neuropathy peripheral [Unknown]
  - Skin toxicity [Recovered/Resolved]
